FAERS Safety Report 6410279-2 (Version None)
Quarter: 2009Q4

REPORT INFORMATION
  Report Type: 
  Country: None (occurrence: None)
  Receive Date: 20091022
  Receipt Date: 20091019
  Transmission Date: 20100525
  Serious: Yes (Hospitalization)
  Sender: FDA-Public Use
  Company Number: B0522668C

PATIENT
  Sex: Female
  Weight: 61 kg

DRUGS (3)
  1. LAPATINIB [Suspect]
     Indication: BREAST CANCER
     Dosage: 1500MG PER DAY
     Route: 048
     Dates: start: 20080722
  2. TRASTUZUMAB [Suspect]
     Indication: BREAST CANCER
     Route: 042
     Dates: start: 20080311
  3. TRILEPTAL [Concomitant]
     Dosage: 300MG THREE TIMES PER DAY
     Dates: end: 20081114

REACTIONS (1)
  - ALCOHOL WITHDRAWAL SYNDROME [None]
